FAERS Safety Report 11444493 (Version 2)
Quarter: 2017Q3

REPORT INFORMATION
  Report Type: Spontaneous
  Country: IN (occurrence: IN)
  Receive Date: 20150902
  Receipt Date: 20170714
  Transmission Date: 20171127
  Serious: Yes (Other)
  Sender: FDA-Public Use
  Company Number: IN-SUN PHARMACEUTICAL INDUSTRIES LTD-2015R1-102324

PATIENT
  Age: 26 Year
  Sex: Male

DRUGS (11)
  1. LACOSAMIDE. [Concomitant]
     Active Substance: LACOSAMIDE
     Indication: PARTIAL SEIZURES
  2. PHENOBARBITAL. [Concomitant]
     Active Substance: PHENOBARBITAL
     Indication: PARTIAL SEIZURES
  3. VALPROIC ACID. [Interacting]
     Active Substance: VALPROIC ACID
     Indication: PARTIAL SEIZURES
     Dosage: 500 MG, TID
     Route: 065
  4. CLOBAZAM [Concomitant]
     Active Substance: CLOBAZAM
     Indication: EPILEPSY
     Dosage: UNK
     Route: 065
  5. LACOSAMIDE. [Concomitant]
     Active Substance: LACOSAMIDE
     Indication: EPILEPSY
     Dosage: UNK
     Route: 065
  6. VALPROIC ACID. [Suspect]
     Active Substance: VALPROIC ACID
     Indication: EPILEPSY
     Dosage: 500 MG, BID
     Route: 065
  7. CLOBAZAM [Concomitant]
     Active Substance: CLOBAZAM
     Indication: PARTIAL SEIZURES
  8. MEROPENEM. [Interacting]
     Active Substance: MEROPENEM
     Indication: KLEBSIELLA INFECTION
     Dosage: 500 MG, BID
     Route: 042
  9. OXCARBAZEPINE. [Concomitant]
     Active Substance: OXCARBAZEPINE
     Indication: EPILEPSY
     Dosage: UNK
     Route: 065
  10. OXCARBAZEPINE. [Concomitant]
     Active Substance: OXCARBAZEPINE
     Indication: PARTIAL SEIZURES
  11. PHENOBARBITAL. [Concomitant]
     Active Substance: PHENOBARBITAL
     Indication: EPILEPSY
     Dosage: UNK
     Route: 065

REACTIONS (2)
  - Drug level decreased [Recovered/Resolved]
  - Drug interaction [Recovered/Resolved]
